FAERS Safety Report 17146602 (Version 2)
Quarter: 2019Q4

REPORT INFORMATION
  Report Type: Spontaneous
  Country: PL (occurrence: PL)
  Receive Date: 20191212
  Receipt Date: 20191219
  Transmission Date: 20200122
  Serious: Yes (Hospitalization)
  Sender: FDA-Public Use
  Company Number: PL-TEVA-2019-PL-1149585

PATIENT
  Age: 56 Year
  Sex: Female

DRUGS (8)
  1. VENLAFAXINE [Suspect]
     Active Substance: VENLAFAXINE HYDROCHLORIDE
     Indication: ANXIETY DISORDER
     Route: 065
  2. CLOMIPRAMINE [Suspect]
     Active Substance: CLOMIPRAMINE
     Indication: ANXIETY DISORDER
     Route: 065
  3. PAROXETINE. [Concomitant]
     Active Substance: PAROXETINE
     Indication: ANXIETY DISORDER
     Route: 065
  4. LORAZEPAM. [Suspect]
     Active Substance: LORAZEPAM
     Indication: ANXIETY DISORDER
     Route: 065
  5. DIAZEPAM. [Suspect]
     Active Substance: DIAZEPAM
     Indication: ANXIETY DISORDER
     Route: 065
  6. ESTAZOLAM. [Suspect]
     Active Substance: ESTAZOLAM
     Indication: ANXIETY DISORDER
     Route: 065
  7. CITALOPRAM [Concomitant]
     Active Substance: CITALOPRAM HYDROBROMIDE
     Indication: ANXIETY DISORDER
     Route: 065
  8. CLONAZEPAM. [Suspect]
     Active Substance: CLONAZEPAM
     Indication: ANXIETY DISORDER
     Route: 065

REACTIONS (12)
  - Palpitations [Unknown]
  - Blood pressure increased [Unknown]
  - Drug ineffective [Unknown]
  - Back pain [Recovered/Resolved]
  - Headache [Unknown]
  - Tremor [Recovered/Resolved]
  - Cardiovascular disorder [Unknown]
  - Generalised tonic-clonic seizure [Unknown]
  - Insomnia [Unknown]
  - Irritability [Unknown]
  - Hypertension [Unknown]
  - Drug dependence [Recovering/Resolving]
